FAERS Safety Report 23727404 (Version 1)
Quarter: 2024Q2

REPORT INFORMATION
  Report Type: Spontaneous
  Country: US (occurrence: US)
  Receive Date: 20240410
  Receipt Date: 20240410
  Transmission Date: 20240716
  Serious: No
  Sender: FDA-Public Use
  Company Number: US-HALEON-2165746

PATIENT
  Age: 38 Year
  Sex: Female

DRUGS (1)
  1. SENSODYNE SENSITIVITY AND GUM WHITENING [Suspect]
     Active Substance: STANNOUS FLUORIDE
     Indication: Dental disorder prophylaxis
     Dosage: EXPDATE:202508
     Dates: start: 20240327, end: 20240329

REACTIONS (1)
  - Toothache [Recovered/Resolved]

NARRATIVE: CASE EVENT DATE: 20240329
